FAERS Safety Report 20391885 (Version 1)
Quarter: 2022Q1

REPORT INFORMATION
  Report Type: Other
  Country: CN (occurrence: CN)
  Receive Date: 20220128
  Receipt Date: 20220128
  Transmission Date: 20220424
  Serious: Yes (Other)
  Sender: FDA-Public Use
  Company Number: CN-Blueprint Medicines Corporation-SO-CN-2021-002253

PATIENT
  Sex: Male

DRUGS (1)
  1. GAVRETO [Suspect]
     Active Substance: PRALSETINIB
     Indication: Lung adenocarcinoma
     Route: 048
     Dates: start: 20210728

REACTIONS (4)
  - Hydrothorax [Unknown]
  - Anaemia [Unknown]
  - Neoplasm progression [Unknown]
  - Drug resistance [Unknown]
